FAERS Safety Report 8176496-9 (Version None)
Quarter: 2012Q1

REPORT INFORMATION
  Report Type: 
  Country: None (occurrence: None)
  Receive Date: 20120301
  Receipt Date: 20120223
  Transmission Date: 20120608
  Serious: Yes (Other)
  Sender: FDA-Public Use
  Company Number: FR-PFIZER INC-2012048935

PATIENT
  Age: 25 Year
  Sex: Male

DRUGS (1)
  1. NEURONTIN [Suspect]
     Indication: QUADRIPLEGIA
     Dosage: 300 MG, 3X/DAY

REACTIONS (1)
  - HYPERTENSIVE CRISIS [None]
